FAERS Safety Report 8838375 (Version 1)
Quarter: 2012Q4

REPORT INFORMATION
  Report Type: 
  Country: GB (occurrence: GB)
  Receive Date: 20121012
  Receipt Date: 20121012
  Transmission Date: 20130627
  Serious: Yes (Death, Hospitalization)
  Sender: FDA-Public Use
  Company Number: PHHY2012GB089914

PATIENT
  Age: 89 Year
  Sex: Female
  Weight: 67 kg

DRUGS (1)
  1. METHOTREXATE [Suspect]
     Indication: RHEUMATOID ARTHRITIS
     Dosage: 17.5mg weekly
     Route: 048
     Dates: start: 20040220

REACTIONS (5)
  - Pancytopenia [Fatal]
  - Bronchopneumonia [Fatal]
  - Bone marrow failure [Fatal]
  - Sepsis [Fatal]
  - Malaise [Fatal]
